FAERS Safety Report 8659787 (Version 2)
Quarter: 2012Q4

REPORT INFORMATION
  Report Type: Spontaneous
  Country: US (occurrence: None)
  Receive Date: 20120626
  Receipt Date: 20120814
  Transmission Date: 20130627
  Serious: Yes (Other)
  Sender: FDA-Public Use
  Company Number: AUR-APL-2012-02719

PATIENT
  Age: 64 Year
  Sex: Female
  Weight: 72.56 kg

DRUGS (7)
  1. VENLAFAXINE [Suspect]
     Indication: EMOTIONAL DISORDER
     Dosage: 225 MG (75 MG, 3 IN 1 D), 150 MG (75 MG, 2 IN 1 D)
     Dates: end: 200706
  2. VENLAFAXINE [Suspect]
     Indication: FIBROMYALGIA
     Dosage: 225 MG (75 MG, 3 IN 1 D), 150 MG (75 MG, 2 IN 1 D)
     Dates: end: 200706
  3. VENLAFAXINE [Suspect]
     Indication: CHRONIC FATIGUE SYNDROME
     Dosage: 225 MG (75 MG, 3 IN 1 D), 150 MG (75 MG, 2 IN 1 D)
     Dates: end: 200706
  4. VENLAFAXINE [Suspect]
     Indication: EMOTIONAL DISORDER
     Dosage: 225 MG (75 MG, 3 IN 1 D), 150 MG (75 MG, 2 IN 1 D)
     Dates: start: 200706
  5. VENLAFAXINE [Suspect]
     Indication: FIBROMYALGIA
     Dosage: 225 MG (75 MG, 3 IN 1 D), 150 MG (75 MG, 2 IN 1 D)
     Dates: start: 200706
  6. VENLAFAXINE [Suspect]
     Indication: CHRONIC FATIGUE SYNDROME
     Dosage: 225 MG (75 MG, 3 IN 1 D), 150 MG (75 MG, 2 IN 1 D)
     Dates: start: 200706
  7. LYRICA [Suspect]
     Indication: FIBROMYALGIA
     Dosage: 225 MG (75 MG, 3 IN 1 D)
     Dates: end: 200706

REACTIONS (7)
  - Nausea [None]
  - Gastric disorder [None]
  - Pharyngeal disorder [None]
  - Unevaluable event [None]
  - Inappropriate schedule of drug administration [None]
  - Breast cancer female [None]
  - Pain [None]
